FAERS Safety Report 8600343 (Version 3)
Quarter: 2014Q1

REPORT INFORMATION
  Report Type: Spontaneous
  Country: US (occurrence: US)
  Receive Date: 20120606
  Receipt Date: 20140108
  Transmission Date: 20141002
  Serious: Yes (Hospitalization)
  Sender: FDA-Public Use
  Company Number: US-ASTRAZENECA-2012SE35560

PATIENT
  Age: 60 Year
  Sex: Female

DRUGS (14)
  1. NEXIUM [Suspect]
     Indication: GASTROOESOPHAGEAL REFLUX DISEASE
     Dosage: 40 MG OCCASIONALLY, 20 MG MOST OF THE TIME ONCE A DAY
     Route: 048
  2. NEXIUM [Suspect]
     Indication: HIATUS HERNIA
     Dosage: 40 MG OCCASIONALLY, 20 MG MOST OF THE TIME ONCE A DAY
     Route: 048
  3. NEXIUM [Suspect]
     Indication: DYSPEPSIA
     Dosage: 40 MG OCCASIONALLY, 20 MG MOST OF THE TIME ONCE A DAY
     Route: 048
  4. PRILOSEC [Suspect]
     Indication: DYSPEPSIA
     Route: 048
  5. PRILOSEC OTC [Suspect]
     Route: 048
  6. PEPCID [Concomitant]
     Dosage: ONCE PER DAY
  7. TUMS [Concomitant]
  8. ALKA SELTZER [Concomitant]
  9. HUMULIN [Concomitant]
  10. GLUCOPHAGE [Concomitant]
  11. LASIX [Concomitant]
  12. SPIROLACTIVE [Concomitant]
  13. LORTAB [Concomitant]
     Indication: PAIN
  14. ASPIRIN [Concomitant]

REACTIONS (14)
  - Gallbladder disorder [Unknown]
  - Osteoporosis [Unknown]
  - Spinal compression fracture [Unknown]
  - Fall [Unknown]
  - Ankle fracture [Unknown]
  - Arthritis [Unknown]
  - Atrophy [Unknown]
  - Cataract [Unknown]
  - Glaucoma [Unknown]
  - Vitamin D deficiency [Unknown]
  - Osteopenia [Unknown]
  - Intervertebral disc degeneration [Unknown]
  - Fibula fracture [Unknown]
  - Tibia fracture [Unknown]
